FAERS Safety Report 7844511-5 (Version None)
Quarter: 2011Q4

REPORT INFORMATION
  Report Type: 
  Country: None (occurrence: None)
  Receive Date: 20111025
  Receipt Date: 20111013
  Transmission Date: 20120403
  Serious: Yes (Hospitalization)
  Sender: FDA-Public Use
  Company Number: US-BAYER-2011-052541

PATIENT
  Age: 20 Year
  Sex: Female
  Weight: 95.692 kg

DRUGS (6)
  1. YASMIN [Suspect]
     Indication: ACNE
     Dosage: UNK
     Dates: start: 20070101, end: 20080101
  2. MIDOL EXTENDED RELIEF CAPLETS [Concomitant]
     Indication: PREMENSTRUAL SYNDROME
  3. YASMIN [Suspect]
     Indication: PREMENSTRUAL SYNDROME
  4. TYLENOL-500 [Concomitant]
     Indication: PREMENSTRUAL SYNDROME
  5. VANCOMYCIN HCL [Concomitant]
  6. CECLOR [Concomitant]
     Dosage: UNK
     Dates: start: 20080724

REACTIONS (3)
  - DEEP VEIN THROMBOSIS [None]
  - INJURY [None]
  - PAIN [None]
